FAERS Safety Report 6942140-9 (Version None)
Quarter: 2010Q3

REPORT INFORMATION
  Report Type: 
  Country: None (occurrence: None)
  Receive Date: 20100823
  Receipt Date: 20100810
  Transmission Date: 20110219
  Serious: Yes (Hospitalization, Other)
  Sender: FDA-Public Use
  Company Number: 016998

PATIENT
  Sex: Male

DRUGS (1)
  1. CIMZIA [Suspect]
     Dosage: UNSPECIFIED, SUBCUTANEOUS
     Route: 058
     Dates: start: 20091217

REACTIONS (1)
  - RECTAL ABSCESS [None]
